FAERS Safety Report 9852115 (Version 1)
Quarter: 2014Q1

REPORT INFORMATION
  Report Type: Report from Study
  Country: US (occurrence: US)
  Receive Date: 20140129
  Receipt Date: 20140129
  Transmission Date: 20141002
  Serious: Yes (Other)
  Sender: FDA-Public Use
  Company Number: US-ALEXION PHARMACEUTICALS INC.-A201202777

PATIENT
  Sex: Male

DRUGS (1)
  1. SOLIRIS [Suspect]
     Indication: HAEMOLYTIC URAEMIC SYNDROME
     Dosage: UNK
     Route: 042

REACTIONS (6)
  - Anaemia [Unknown]
  - Prostate cancer metastatic [Unknown]
  - Dialysis [Unknown]
  - Plasmapheresis [Unknown]
  - Packed red blood cell transfusion [Unknown]
  - Platelet transfusion [Unknown]
